FAERS Safety Report 10482292 (Version 3)
Quarter: 2015Q2

REPORT INFORMATION
  Report Type: Spontaneous
  Country: BR (occurrence: BR)
  Receive Date: 20140929
  Receipt Date: 20150428
  Transmission Date: 20150821
  Serious: Yes (Other)
  Sender: FDA-Public Use
  Company Number: BR-JNJFOC-20140923007

PATIENT
  Sex: Female
  Weight: 72 kg

DRUGS (2)
  1. REMICADE [Suspect]
     Active Substance: INFLIXIMAB
     Indication: RHEUMATOID ARTHRITIS
     Route: 042
     Dates: start: 2012, end: 2013
  2. REMICADE [Suspect]
     Active Substance: INFLIXIMAB
     Indication: RHEUMATOID ARTHRITIS
     Route: 042
     Dates: start: 2010

REACTIONS (5)
  - Hypertension [Not Recovered/Not Resolved]
  - Drug ineffective [Recovered/Resolved]
  - Diabetes mellitus [Not Recovered/Not Resolved]
  - Anaemia [Recovering/Resolving]
  - Spinal disorder [Recovered/Resolved]

NARRATIVE: CASE EVENT DATE: 2011
